FAERS Safety Report 12187991 (Version 2)
Quarter: 2016Q1

REPORT INFORMATION
  Report Type: Spontaneous
  Country: US (occurrence: US)
  Receive Date: 20160317
  Receipt Date: 20160317
  Transmission Date: 20160526
  Serious: Yes (Hospitalization)
  Sender: FDA-Public Use
  Company Number: US-HLSUS-2016-US-000132

PATIENT
  Age: 55 Year
  Sex: Male

DRUGS (1)
  1. CLOZAPINE. [Suspect]
     Active Substance: CLOZAPINE
     Dosage: 100MG MORNING/350 MG BEDTIME

REACTIONS (3)
  - Fibula fracture [Unknown]
  - Tibia fracture [Unknown]
  - Fall [None]

NARRATIVE: CASE EVENT DATE: 20160313
